FAERS Safety Report 18100394 (Version 7)
Quarter: 2021Q1

REPORT INFORMATION
  Report Type: Spontaneous
  Country: US (occurrence: US)
  Receive Date: 20200731
  Receipt Date: 20210324
  Transmission Date: 20210419
  Serious: Yes (Hospitalization, Other)
  Sender: FDA-Public Use
  Company Number: US-TEVA-2020-US-1807345

PATIENT
  Age: 59 Year
  Sex: Female
  Weight: 76 kg

DRUGS (26)
  1. VALSARTAN OHM [Suspect]
     Active Substance: VALSARTAN
     Indication: HYPERTENSION
     Route: 048
  2. DIOVAN [Suspect]
     Active Substance: VALSARTAN
     Indication: HYPERTENSION
     Route: 048
  3. FLUTICASONE. [Concomitant]
     Active Substance: FLUTICASONE
  4. SINGULAIR [Concomitant]
     Active Substance: MONTELUKAST SODIUM
     Route: 048
  5. LOSARTAN. [Concomitant]
     Active Substance: LOSARTAN
     Route: 048
  6. CEFDINIR. [Concomitant]
     Active Substance: CEFDINIR
     Route: 048
     Dates: start: 20170905
  7. VALSARTAN SOLCO [Suspect]
     Active Substance: VALSARTAN
     Indication: HYPERTENSION
     Route: 048
     Dates: start: 20160711, end: 20161212
  8. ASPIRIN EC LOW?DOSE 81MG DELAYED RELEASE TABLET [Concomitant]
     Dosage: 1 DOSAGE FORMS DAILY;
     Route: 048
  9. PROAIR HFA [Concomitant]
     Active Substance: ALBUTEROL SULFATE
     Indication: DYSPNOEA
     Dosage: 2 PUFFS INHALATION EVERY 4 ? 6 HOURS AS NEEDED.
     Route: 065
     Dates: start: 20170905
  10. VALSARTAN TEVA [Suspect]
     Active Substance: VALSARTAN
     Indication: HYPERTENSION
     Route: 048
     Dates: start: 20161213, end: 20180808
  11. VALSARTAN MYLAN [Suspect]
     Active Substance: VALSARTAN
     Indication: HYPERTENSION
     Route: 048
  12. VALSARTAN MACLEODS [Suspect]
     Active Substance: VALSARTAN
     Indication: HYPERTENSION
     Route: 048
  13. VALSARTAN SANDOZ [Suspect]
     Active Substance: VALSARTAN
     Indication: HYPERTENSION
     Route: 048
  14. ALBUTEROL SULFATE. [Concomitant]
     Active Substance: ALBUTEROL SULFATE
     Dosage: 2.5MG/3ML (0.083%) BY NEBULIZER EVERY 6 HOURS
  15. DICLOFENAC SODIUM 75MG DELAYED RELEASE TABLET [Concomitant]
     Dosage: 150 MILLIGRAM DAILY;
     Route: 048
  16. VALSARTAN AUROBINDO [Suspect]
     Active Substance: VALSARTAN
     Indication: HYPERTENSION
     Route: 048
     Dates: start: 20190614, end: 20190916
  17. XANAX [Concomitant]
     Active Substance: ALPRAZOLAM
     Dosage: 1 MILLIGRAM DAILY;
     Route: 048
  18. AMLODIPINE BESYLATE. [Concomitant]
     Active Substance: AMLODIPINE BESYLATE
     Indication: HYPERTENSION
     Dosage: 10 MILLIGRAM DAILY;
     Route: 048
     Dates: start: 2014
  19. VENTOLIN HFA [Concomitant]
     Active Substance: ALBUTEROL SULFATE
     Dosage: 90MCG/INHALATION AEROSOL 2 PUFFS INHALED 4 TIMES A DAY PRN
  20. TRIAZOLAM. [Concomitant]
     Active Substance: TRIAZOLAM
     Indication: SLEEP DISORDER
     Dosage: .25 MILLIGRAM DAILY; AT NIGHT
     Route: 048
     Dates: start: 2015
  21. IBUPROFEN. [Concomitant]
     Active Substance: IBUPROFEN
     Indication: ARTHRALGIA
     Dosage: 800MG/AS NEEDED
     Dates: start: 2015
  22. IBUPROFEN. [Concomitant]
     Active Substance: IBUPROFEN
     Indication: PAIN
     Dosage: 1800 MILLIGRAM DAILY; AS NEEDED
     Route: 048
  23. HYDROXYZINE [Concomitant]
     Active Substance: HYDROXYZINE HYDROCHLORIDE
  24. DICYCLOMINE HYDROCHLORIDE. [Concomitant]
     Active Substance: DICYCLOMINE HYDROCHLORIDE
     Dosage: 80 MILLIGRAM DAILY;
     Route: 048
  25. BENZONATATE. [Concomitant]
     Active Substance: BENZONATATE
     Route: 065
     Dates: start: 20170905
  26. PREDNISONE. [Concomitant]
     Active Substance: PREDNISONE
     Dosage: 40 MILLIGRAM DAILY;
     Route: 048

REACTIONS (11)
  - Rash maculo-papular [Not Recovered/Not Resolved]
  - Tendonitis [Unknown]
  - Nausea [Unknown]
  - Arthralgia [Unknown]
  - Head discomfort [Unknown]
  - Rhinitis allergic [Unknown]
  - Small intestine carcinoma metastatic [Unknown]
  - Cough [Unknown]
  - Malignant peritoneal neoplasm [Unknown]
  - Ovarian cancer metastatic [Unknown]
  - Dermatitis [Unknown]

NARRATIVE: CASE EVENT DATE: 201712
